FAERS Safety Report 6171500-1 (Version None)
Quarter: 2009Q2

REPORT INFORMATION
  Report Type: 
  Country: None (occurrence: None)
  Receive Date: 20090429
  Receipt Date: 20090421
  Transmission Date: 20091009
  Serious: Yes (Other)
  Sender: FDA-Public Use
  Company Number: US-BAYER-200911161BCC

PATIENT
  Age: 19 Year
  Sex: Female
  Weight: 34 kg

DRUGS (6)
  1. MILK OF MAGNESIA TAB [Suspect]
     Indication: PROPHYLAXIS
     Dosage: TOTAL DAILY DOSE: 120 ML
     Route: 033
     Dates: start: 20090411
  2. DIAZEPAM [Concomitant]
  3. BACLOFEN [Concomitant]
  4. PREVACID [Concomitant]
  5. NEURONTIN [Concomitant]
  6. ZANAFLEX [Concomitant]

REACTIONS (2)
  - CONSTIPATION [None]
  - ILEUS [None]
